FAERS Safety Report 5748088-X (Version None)
Quarter: 2008Q2

REPORT INFORMATION
  Report Type: 
  Country: None (occurrence: None)
  Receive Date: 20080521
  Receipt Date: 20080512
  Transmission Date: 20081010
  Serious: Yes (Hospitalization)
  Sender: FDA-Public Use
  Company Number: 2008BI004073

PATIENT
  Age: 51 Year
  Sex: Male
  Weight: 54.8852 kg

DRUGS (11)
  1. AVONEX [Suspect]
     Indication: MULTIPLE SCLEROSIS
     Dosage: 30 UG QW IM
     Route: 030
     Dates: start: 20031217, end: 20071228
  2. CELEXA [Concomitant]
  3. POLYGLYCOL [POLYETHYLENE GLYCOL] [Concomitant]
  4. PEPCID [Concomitant]
  5. DOXAZOSIN MESYLATE [Concomitant]
  6. REMERON [Concomitant]
  7. LORAZEPAM [Concomitant]
  8. AMITRIPTYLINE HCL [Concomitant]
  9. BACLOFEN [Concomitant]
  10. PROVIGIL [Concomitant]
  11. MEGACE [Concomitant]

REACTIONS (8)
  - ABDOMINAL PAIN [None]
  - BONE PAIN [None]
  - COLORECTAL CANCER STAGE IV [None]
  - DIARRHOEA [None]
  - HEPATIC PAIN [None]
  - METASTASES TO ADRENALS [None]
  - METASTASES TO LIVER [None]
  - METASTASES TO LUNG [None]
